FAERS Safety Report 11520133 (Version 1)
Quarter: 2015Q3

REPORT INFORMATION
  Report Type: Spontaneous
  Country: US (occurrence: None)
  Receive Date: 20150917
  Receipt Date: 20150917
  Transmission Date: 20151125
  Serious: No
  Sender: FDA-Public Use
  Company Number: None

PATIENT
  Age: 39 Year
  Sex: Female
  Weight: 54.43 kg

DRUGS (9)
  1. LAMICTAL [Concomitant]
     Active Substance: LAMOTRIGINE
  2. FLUCTICASONE [Concomitant]
  3. CYCLOBENZAPRINE [Concomitant]
     Active Substance: CYCLOBENZAPRINE
  4. NAPROXEN. [Concomitant]
     Active Substance: NAPROXEN
  5. AZELASTINE [Concomitant]
     Active Substance: AZELASTINE
  6. SPIRONOLACTONE 25 MG [Suspect]
     Active Substance: SPIRONOLACTONE
     Indication: ACNE
     Dosage: 1
     Route: 048
  7. IMITREX [Concomitant]
     Active Substance: SUMATRIPTAN\SUMATRIPTAN SUCCINATE
  8. BUTTERBUR [Concomitant]
  9. TOPAMAX [Concomitant]
     Active Substance: TOPIRAMATE

REACTIONS (9)
  - Metrorrhagia [None]
  - Lethargy [None]
  - Fatigue [None]
  - Pain in extremity [None]
  - Glucose tolerance impaired [None]
  - Therapy change [None]
  - Oligomenorrhoea [None]
  - Muscle spasms [None]
  - Weight increased [None]
